FAERS Safety Report 5596636-5 (Version None)
Quarter: 2007Q4

REPORT INFORMATION
  Report Type: 
  Country: None (occurrence: None)
  Receive Date: 20071219
  Receipt Date: 20070918
  Transmission Date: 20080405
  Serious: No
  Sender: FDA-Public Use
  Company Number: HQWYE153719JUL07

PATIENT

DRUGS (1)
  1. TORISEL [Suspect]

REACTIONS (1)
  - EXTRAVASATION [None]
